FAERS Safety Report 16160851 (Version 3)
Quarter: 2019Q2

REPORT INFORMATION
  Report Type: Spontaneous
  Country: AU (occurrence: AU)
  Receive Date: 20190405
  Receipt Date: 20190416
  Transmission Date: 20190711
  Serious: Yes (Other)
  Sender: FDA-Public Use
  Company Number: AU-009507513-1904AUS001884

PATIENT
  Age: 75 Year
  Sex: Male

DRUGS (3)
  1. ANANDRON [Interacting]
     Active Substance: NILUTAMIDE
     Indication: PRODUCT USED FOR UNKNOWN INDICATION
     Dosage: 2 DF, QD
     Route: 048
  2. ZOLADEX [Interacting]
     Active Substance: GOSERELIN ACETATE
     Indication: PRODUCT USED FOR UNKNOWN INDICATION
     Dosage: UNK
  3. NASONEX [Suspect]
     Active Substance: MOMETASONE FUROATE
     Indication: PRODUCT USED FOR UNKNOWN INDICATION
     Dosage: UNK
     Route: 055

REACTIONS (6)
  - Deafness unilateral [Unknown]
  - Drug interaction [Unknown]
  - Dyspnoea [Unknown]
  - Cough [Unknown]
  - Dizziness [Unknown]
  - Rhinorrhoea [Unknown]
